FAERS Safety Report 6945558-3 (Version None)
Quarter: 2010Q3

REPORT INFORMATION
  Report Type: 
  Country: None (occurrence: None)
  Receive Date: 20100827
  Receipt Date: 20100824
  Transmission Date: 20110219
  Serious: Yes (Life-Threatening)
  Sender: FDA-Public Use
  Company Number: FR-ROCHE-722962

PATIENT
  Sex: Female

DRUGS (3)
  1. ROCEPHIN [Suspect]
     Indication: SEPSIS
     Route: 065
     Dates: start: 20100730, end: 20100809
  2. OFLOCET [Suspect]
     Indication: SEPSIS
     Route: 065
     Dates: start: 20100730, end: 20100803
  3. EUPANTOL [Suspect]
     Indication: SEPSIS
     Dosage: LONG TERM TREATMENT
     Route: 065
     Dates: end: 20100809

REACTIONS (1)
  - PANCYTOPENIA [None]
